FAERS Safety Report 9253781 (Version 2)
Quarter: 2013Q2

REPORT INFORMATION
  Report Type: Spontaneous
  Country: US (occurrence: US)
  Receive Date: 20130425
  Receipt Date: 20130521
  Transmission Date: 20140414
  Serious: No
  Sender: FDA-Public Use
  Company Number: US-PFIZER INC-2013128029

PATIENT
  Age: 70 Year
  Sex: Female
  Weight: 86.2 kg

DRUGS (1)
  1. VERAPAMIL HCL [Suspect]
     Dosage: UNK

REACTIONS (1)
  - Bradycardia [Unknown]
